FAERS Safety Report 13637308 (Version 2)
Quarter: 2017Q3

REPORT INFORMATION
  Report Type: Spontaneous
  Country: CL (occurrence: CL)
  Receive Date: 20170609
  Receipt Date: 20170703
  Transmission Date: 20171127
  Serious: Yes (Death)
  Sender: FDA-Public Use
  Company Number: US-ASTRAZENECA-2017SE60559

PATIENT
  Age: 75 Day
  Sex: Male
  Weight: 2.2 kg

DRUGS (1)
  1. SYNAGIS [Suspect]
     Active Substance: PALIVIZUMAB
     Indication: ANTIVIRAL PROPHYLAXIS
     Route: 030
     Dates: start: 20170523, end: 20170523

REACTIONS (2)
  - Mouth haemorrhage [Unknown]
  - Sudden death [Fatal]

NARRATIVE: CASE EVENT DATE: 20170529
